FAERS Safety Report 15205840 (Version 3)
Quarter: 2018Q3

REPORT INFORMATION
  Report Type: Spontaneous
  Country: US (occurrence: US)
  Receive Date: 20180727
  Receipt Date: 20180803
  Transmission Date: 20181010
  Serious: Yes (Other)
  Sender: FDA-Public Use
  Company Number: US-BEH-2018093109

PATIENT
  Age: 32 Year
  Sex: Female
  Weight: 84.36 kg

DRUGS (4)
  1. RHOPHYLAC [Suspect]
     Active Substance: HUMAN RHO(D) IMMUNE GLOBULIN
     Indication: FOETAL-MATERNAL HAEMORRHAGE
     Dosage: 1 DF, TOT
     Route: 030
     Dates: start: 20180612, end: 20180612
  2. RHOPHYLAC [Suspect]
     Active Substance: HUMAN RHO(D) IMMUNE GLOBULIN
     Indication: PROPHYLAXIS
     Dosage: 4 VIALS
     Route: 065
     Dates: start: 20180724, end: 20180724
  3. RHOPHYLAC [Suspect]
     Active Substance: HUMAN RHO(D) IMMUNE GLOBULIN
     Dosage: 4 VIALS
     Route: 065
     Dates: start: 20180724, end: 20180724
  4. RHOPHYLAC [Suspect]
     Active Substance: HUMAN RHO(D) IMMUNE GLOBULIN
     Dosage: 2 VIALS
     Route: 065
     Dates: start: 20180725, end: 20180725

REACTIONS (2)
  - Chills [Unknown]
  - Haemorrhage foetal [Recovered/Resolved]

NARRATIVE: CASE EVENT DATE: 20180724
